FAERS Safety Report 6003262-2 (Version None)
Quarter: 2008Q4

REPORT INFORMATION
  Report Type: 
  Country: None (occurrence: None)
  Receive Date: 20081212
  Receipt Date: 20081212
  Transmission Date: 20090506
  Serious: No
  Sender: FDA-Public Use
  Company Number: None

PATIENT
  Sex: Female
  Weight: 105.2345 kg

DRUGS (7)
  1. ORENCIA [Suspect]
     Indication: RHEUMATOID ARTHRITIS
     Dosage: 750MG EVERY 4 WEEKS IV
     Route: 042
     Dates: start: 20080128, end: 20081126
  2. METHOTREXATE [Concomitant]
  3. CELEBREX [Concomitant]
  4. LEXAPRO [Concomitant]
  5. ZYRTEC [Concomitant]
  6. ORAL CONTRACEPTIVES [Concomitant]
  7. MAGNESIUM SUPPLEMENTS [Concomitant]

REACTIONS (1)
  - LICHEN SCLEROSUS [None]
